FAERS Safety Report 15727545 (Version 1)
Quarter: 2018Q4

REPORT INFORMATION
  Report Type: Spontaneous
  Country: US (occurrence: US)
  Receive Date: 20181217
  Receipt Date: 20181217
  Transmission Date: 20190205
  Serious: Yes (Hospitalization)
  Sender: FDA-Public Use
  Company Number: US-BIOVITRUM-2018US1525

PATIENT
  Age: 64 Year
  Sex: Male

DRUGS (10)
  1. KINERET [Suspect]
     Active Substance: ANAKINRA
     Indication: GOUT
     Route: 058
     Dates: end: 20181126
  2. KINERET [Suspect]
     Active Substance: ANAKINRA
     Indication: ARTHRITIS
  3. CLINDAMYCIN PHOSPHATE. [Concomitant]
     Active Substance: CLINDAMYCIN PHOSPHATE
     Route: 061
  4. PRILOSEC [Concomitant]
     Active Substance: OMEPRAZOLE MAGNESIUM
  5. MELATONIN [Concomitant]
     Active Substance: MELATONIN
     Dosage: AT BEDTIME
  6. TRAZODONE [Concomitant]
     Active Substance: TRAZODONE HYDROCHLORIDE
     Dosage: AT BEDTIME
  7. ATENOLOL. [Concomitant]
     Active Substance: ATENOLOL
  8. ATENOLOL. [Concomitant]
     Active Substance: ATENOLOL
     Dosage: DOSE REDUCED TO 25 MG DURING HOSPITALIZATION
  9. FEBUXOSTAT. [Concomitant]
     Active Substance: FEBUXOSTAT
  10. MULTIVITAMIN [Concomitant]
     Active Substance: VITAMINS

REACTIONS (4)
  - Petechiae [Unknown]
  - Headache [Unknown]
  - Platelet count decreased [Recovered/Resolved]
  - Heart rate decreased [Unknown]

NARRATIVE: CASE EVENT DATE: 20181126
